FAERS Safety Report 5160530-4 (Version None)
Quarter: 2006Q4

REPORT INFORMATION
  Report Type: 
  Country: None (occurrence: None)
  Receive Date: 20061129
  Receipt Date: 20060929
  Transmission Date: 20070319
  Serious: Yes (Death, Hospitalization)
  Sender: FDA-Public Use
  Company Number: FR-ABBOTT-06P-056-0345415-00

PATIENT
  Age: 39 Year
  Sex: Female

DRUGS (4)
  1. NORVIR [Suspect]
     Indication: HIV INFECTION
     Route: 048
     Dates: start: 20060216, end: 20060912
  2. APTIVUS [Suspect]
     Indication: HIV INFECTION
     Route: 048
     Dates: start: 20060216, end: 20060912
  3. TRUVADA [Concomitant]
     Indication: HIV INFECTION
     Route: 048
     Dates: start: 20060216, end: 20060912
  4. LEVETIRACETAM [Concomitant]
     Indication: EPILEPSY
     Route: 048
     Dates: start: 20060216, end: 20060912

REACTIONS (1)
  - CONVULSION [None]
